FAERS Safety Report 20871232 (Version 3)
Quarter: 2023Q2

REPORT INFORMATION
  Report Type: Report from Study
  Country: CA (occurrence: None)
  Receive Date: 20220525
  Receipt Date: 20230609
  Transmission Date: 20230721
  Serious: Yes (Other)
  Sender: FDA-Public Use
  Company Number: CA-PFIZER INC-202200729865

PATIENT
  Age: 54 Year
  Sex: Female

DRUGS (7)
  1. METHOTREXATE [Interacting]
     Active Substance: METHOTREXATE
     Indication: Product used for unknown indication
  2. SULFASALAZINE [Interacting]
     Active Substance: SULFASALAZINE
     Indication: Product used for unknown indication
  3. FOLIC ACID [Interacting]
     Active Substance: FOLIC ACID
     Indication: Product used for unknown indication
  4. FOLIC ACID [Interacting]
     Active Substance: FOLIC ACID
  5. PANTOPRAZOLE [Interacting]
     Active Substance: PANTOPRAZOLE
     Indication: Product used for unknown indication
  6. PANTOPRAZOLE [Interacting]
     Active Substance: PANTOPRAZOLE
  7. HYDROXYCHLOROQUINE [Concomitant]
     Active Substance: HYDROXYCHLOROQUINE
     Route: 065

REACTIONS (10)
  - Drug interaction [Unknown]
  - Dysstasia [Unknown]
  - Gait disturbance [Unknown]
  - General physical health deterioration [Unknown]
  - Grip strength decreased [Unknown]
  - Illness [Unknown]
  - Mobility decreased [Unknown]
  - Pain [Unknown]
  - Pneumothorax [Unknown]
  - Mental impairment [Unknown]
